FAERS Safety Report 4872664-X (Version None)
Quarter: 2006Q1

REPORT INFORMATION
  Report Type: 
  Country: None (occurrence: None)
  Receive Date: 20060103
  Receipt Date: 20051216
  Transmission Date: 20060701
  Serious: Yes (Disabling)
  Sender: FDA-Public Use
  Company Number: DSA_27575_2005

PATIENT
  Age: 86 Year
  Sex: Male

DRUGS (2)
  1. ENALAPRIL MALEATE [Suspect]
     Dosage: 10 MG PO
     Route: 048
     Dates: start: 20040615, end: 20051205
  2. BENDROFLUMETHIAZIDE [Concomitant]

REACTIONS (3)
  - ABDOMINAL DISTENSION [None]
  - ABDOMINAL PAIN [None]
  - DIARRHOEA [None]
